FAERS Safety Report 9340037 (Version 1)
Quarter: 2013Q2

REPORT INFORMATION
  Report Type: Spontaneous
  Country: US (occurrence: None)
  Receive Date: 20130607
  Receipt Date: 20130607
  Transmission Date: 20140414
  Serious: Yes (Other)
  Sender: FDA-Public Use
  Company Number: None

PATIENT
  Age: 64 Year
  Sex: Female
  Weight: 74.84 kg

DRUGS (1)
  1. HUMAN CHORIONIC GONADOTROPIN [Suspect]
     Dosage: 12-14 DROPS 3 TIMES PER DAY PO
     Route: 048
     Dates: start: 20130426, end: 20130601

REACTIONS (5)
  - Pain [None]
  - Dysstasia [None]
  - Neck pain [None]
  - Musculoskeletal pain [None]
  - Blepharospasm [None]
